FAERS Safety Report 5832408-1 (Version None)
Quarter: 2008Q3

REPORT INFORMATION
  Report Type: 
  Country: None (occurrence: None)
  Receive Date: 20080804
  Receipt Date: 20080730
  Transmission Date: 20090109
  Serious: Yes (Hospitalization, Other)
  Sender: FDA-Public Use
  Company Number: US-GILEAD-2008-0017560

PATIENT
  Sex: Female
  Weight: 79.45 kg

DRUGS (15)
  1. LETAIRIS [Suspect]
     Indication: PULMONARY HYPERTENSION
     Route: 048
     Dates: start: 20080609
  2. TOPROL-XL [Concomitant]
     Indication: HYPERTENSION
     Route: 048
  3. COUMADIN [Concomitant]
     Indication: ATRIAL FIBRILLATION
     Route: 048
  4. GLYBURIDE [Concomitant]
     Indication: DIABETES MELLITUS
     Route: 048
  5. SYNTHROID [Concomitant]
     Indication: HYPOTHYROIDISM
     Route: 048
  6. ZOCOR [Concomitant]
     Indication: HYPERCHOLESTEROLAEMIA
     Route: 048
  7. ALBUTEROL [Concomitant]
     Indication: BRONCHITIS
     Dosage: 1-2 PUFFS
     Route: 055
  8. ALBUTEROL [Concomitant]
     Indication: DYSPNOEA
  9. ADVAIR DISKUS 100/50 [Concomitant]
     Indication: BRONCHITIS
     Dosage: 250/50
     Route: 055
  10. METOLAZONE [Concomitant]
     Indication: PULMONARY ARTERIAL HYPERTENSION
     Route: 048
  11. COLCHICINE [Concomitant]
     Indication: GOUT
     Route: 048
  12. SPIRONOLACTONE [Concomitant]
     Indication: PULMONARY ARTERIAL HYPERTENSION
     Route: 048
  13. FUROSEMIDE [Concomitant]
     Indication: PULMONARY ARTERIAL HYPERTENSION
     Route: 048
  14. NEXIUM [Concomitant]
     Route: 048
     Dates: end: 20080721
  15. PREDNISONE [Concomitant]
     Dates: end: 20080721

REACTIONS (2)
  - BRONCHITIS [None]
  - CLOSTRIDIUM DIFFICILE COLITIS [None]
